FAERS Safety Report 4354324-7 (Version None)
Quarter: 2004Q2

REPORT INFORMATION
  Report Type: 
  Country: None (occurrence: None)
  Receive Date: 20040503
  Receipt Date: 20040426
  Transmission Date: 20050107
  Serious: Yes (Other)
  Sender: FDA-Public Use
  Company Number: 2004199367CA

PATIENT
  Age: 38 Year
  Sex: Female
  Weight: 80.3 kg

DRUGS (2)
  1. DEPO-PROVERA [Suspect]
     Indication: CONTRACEPTION
     Dosage: SEE IMAE
     Dates: start: 20030501, end: 20030501
  2. DEPO-PROVERA [Suspect]
     Indication: CONTRACEPTION
     Dosage: SEE IMAE
     Dates: start: 20040212, end: 20040212

REACTIONS (5)
  - AMENORRHOEA [None]
  - HYPERTENSION [None]
  - METRORRHAGIA [None]
  - VAGINAL HAEMORRHAGE [None]
  - WEIGHT INCREASED [None]
